FAERS Safety Report 6013761-5 (Version None)
Quarter: 2008Q4

REPORT INFORMATION
  Report Type: 
  Country: None (occurrence: None)
  Receive Date: 20081219
  Receipt Date: 20081217
  Transmission Date: 20090506
  Serious: Yes (Other)
  Sender: FDA-Public Use
  Company Number: B0550326A

PATIENT
  Age: 18 Year
  Sex: Female

DRUGS (2)
  1. VALTREX [Suspect]
     Indication: HERPES SIMPLEX
     Dosage: 500MG PER DAY
     Route: 048
     Dates: start: 20071102, end: 20071125
  2. ALASE [Concomitant]
     Indication: DRUG USE FOR UNKNOWN INDICATION
     Dosage: .4G PER DAY
     Route: 061
     Dates: start: 20071104, end: 20071125

REACTIONS (1)
  - ERYTHEMA MULTIFORME [None]
